FAERS Safety Report 5171143-2 (Version None)
Quarter: 2006Q4

REPORT INFORMATION
  Report Type: 
  Country: None (occurrence: None)
  Receive Date: 20061213
  Receipt Date: 20061204
  Transmission Date: 20070319
  Serious: Yes (Other)
  Sender: FDA-Public Use
  Company Number: US-BRISTOL-MYERS SQUIBB COMPANY-13599691

PATIENT
  Age: 58 Year
  Sex: Female
  Weight: 66 kg

DRUGS (14)
  1. CETUXIMAB [Suspect]
     Indication: NEOPLASM MALIGNANT
     Route: 042
     Dates: start: 20061121, end: 20061121
  2. CISPLATIN [Suspect]
     Indication: NEOPLASM MALIGNANT
     Route: 042
     Dates: start: 20061121, end: 20061121
  3. RADIATION THERAPY [Suspect]
     Indication: NEOPLASM MALIGNANT
     Dates: start: 20061121
  4. ACETAMINOPHEN AND CODEINE PHOSPHATE [Concomitant]
  5. ANCEF [Concomitant]
  6. ATIVAN [Concomitant]
  7. DEXAMETHASONE [Concomitant]
  8. DIPHENHYDRAMINE HCL [Concomitant]
  9. KYTRIL [Concomitant]
  10. LORAZEPAM [Concomitant]
  11. PROCHLORPERAZINE [Concomitant]
  12. VICODIN [Concomitant]
  13. VIVELLE [Concomitant]
  14. ZOFRAN [Concomitant]

REACTIONS (1)
  - LYMPHOPENIA [None]
